FAERS Safety Report 10380058 (Version 2)
Quarter: 2014Q3

REPORT INFORMATION
  Report Type: Report from Study
  Country: US (occurrence: US)
  Receive Date: 20140813
  Receipt Date: 20140918
  Transmission Date: 20150326
  Serious: Yes (Hospitalization)
  Sender: FDA-Public Use
  Company Number: US-BIOGENIDEC-2014BI078862

PATIENT
  Age: 70 Year
  Sex: Female

DRUGS (2)
  1. AVONEX [Suspect]
     Active Substance: INTERFERON BETA-1A
     Indication: MULTIPLE SCLEROSIS
     Route: 030
     Dates: start: 2003
  2. AVONEX [Suspect]
     Active Substance: INTERFERON BETA-1A
     Indication: MULTIPLE SCLEROSIS
     Route: 030
     Dates: end: 201409

REACTIONS (14)
  - Peripheral swelling [Not Recovered/Not Resolved]
  - Hypotonia [Unknown]
  - Asthenia [Unknown]
  - Balance disorder [Not Recovered/Not Resolved]
  - Muscle atrophy [Unknown]
  - Trigeminal neuralgia [Not Recovered/Not Resolved]
  - Toxicity to various agents [Recovered/Resolved]
  - Cognitive disorder [Not Recovered/Not Resolved]
  - Musculoskeletal disorder [Not Recovered/Not Resolved]
  - Abasia [Not Recovered/Not Resolved]
  - Pruritus [Not Recovered/Not Resolved]
  - Oxygen saturation decreased [Not Recovered/Not Resolved]
  - Influenza like illness [Unknown]
  - Confusional state [Not Recovered/Not Resolved]

NARRATIVE: CASE EVENT DATE: 2012
